FAERS Safety Report 4548629-4 (Version None)
Quarter: 2005Q1

REPORT INFORMATION
  Report Type: 
  Country: None (occurrence: None)
  Receive Date: 20050107
  Receipt Date: 20050107
  Transmission Date: 20050727
  Serious: Yes (Hospitalization)
  Sender: FDA-Public Use
  Company Number: None

PATIENT
  Age: 43 Year
  Sex: Female

DRUGS (1)
  1. SEASONALE [Suspect]
     Indication: CONTRACEPTION

REACTIONS (3)
  - HYPOAESTHESIA [None]
  - ISCHAEMIC STROKE [None]
  - SPEECH DISORDER [None]
